FAERS Safety Report 6188467-2 (Version None)
Quarter: 2009Q2

REPORT INFORMATION
  Report Type: 
  Country: None (occurrence: None)
  Receive Date: 20090513
  Receipt Date: 20090501
  Transmission Date: 20091009
  Serious: Yes (Hospitalization)
  Sender: FDA-Public Use
  Company Number: IT-WYE-H09176009

PATIENT
  Age: 5 Year
  Sex: Female
  Weight: 19.4 kg

DRUGS (2)
  1. IBUPROFEN [Suspect]
     Indication: FEBRILE INFECTION
     Dosage: 5 MG/KG/DOSE EVERY 8 HOURS
     Route: 048
  2. ACETAMINOPHEN [Suspect]
     Indication: FEBRILE INFECTION
     Dosage: 11 MG/KG/DOSE
     Route: 048

REACTIONS (2)
  - HEPATITIS CHOLESTATIC [None]
  - RENAL FAILURE ACUTE [None]
